FAERS Safety Report 17698733 (Version 1)
Quarter: 2020Q2

REPORT INFORMATION
  Report Type: Spontaneous
  Country: US (occurrence: US)
  Receive Date: 20200423
  Receipt Date: 20200423
  Transmission Date: 20200714
  Serious: No
  Sender: FDA-Public Use
  Company Number: US-GLAXOSMITHKLINE-US2020068457

PATIENT
  Age: 78 Year
  Sex: Female

DRUGS (1)
  1. FLONASE [Suspect]
     Active Substance: FLUTICASONE PROPIONATE
     Indication: HYPERSENSITIVITY
     Dosage: UNK,(I USED IT 4 TIMES FOR 4 DAYS)
     Dates: start: 20200410, end: 20200420

REACTIONS (7)
  - Pain [Recovered/Resolved]
  - Inappropriate schedule of product administration [Unknown]
  - Extra dose administered [Unknown]
  - Burning sensation [Recovered/Resolved]
  - Nasal discomfort [Recovered/Resolved]
  - Swelling face [Recovered/Resolved]
  - Drug hypersensitivity [Recovered/Resolved]

NARRATIVE: CASE EVENT DATE: 20200410
